FAERS Safety Report 13639039 (Version 7)
Quarter: 2018Q1

REPORT INFORMATION
  Report Type: Spontaneous
  Country: US (occurrence: US)
  Receive Date: 20170609
  Receipt Date: 20180208
  Transmission Date: 20180508
  Serious: Yes (Death, Hospitalization)
  Sender: FDA-Public Use
  Company Number: US-ACTELION-A-NJ2017-155063

PATIENT
  Age: 72 Year
  Sex: Male

DRUGS (12)
  1. SPIRONOLACTONE. [Concomitant]
     Active Substance: SPIRONOLACTONE
  2. XOPENEX [Concomitant]
     Active Substance: LEVALBUTEROL HYDROCHLORIDE
  3. OPSUMIT [Suspect]
     Active Substance: MACITENTAN
     Indication: PULMONARY HYPERTENSION
     Dosage: 10 MG, QD
     Route: 048
     Dates: start: 20140313
  4. METOPROLOL. [Concomitant]
     Active Substance: METOPROLOL
  5. OMEPRAZOLE. [Concomitant]
     Active Substance: OMEPRAZOLE
  6. VELETRI [Suspect]
     Active Substance: EPOPROSTENOL
     Indication: PULMONARY HYPERTENSION
     Dosage: 26 NG/KG, PER MIN
     Route: 042
     Dates: start: 20170506
  7. DIOVAN [Concomitant]
     Active Substance: VALSARTAN
  8. TYVASO [Concomitant]
     Active Substance: TREPROSTINIL
     Dosage: 108 MCG, QID
     Dates: start: 201707
  9. ADCIRCA [Concomitant]
     Active Substance: TADALAFIL
     Dosage: 40 MG, QD
     Dates: start: 201401
  10. OMNARIS [Concomitant]
     Active Substance: CICLESONIDE
  11. WARFARIN [Concomitant]
     Active Substance: WARFARIN
  12. ALVESCO [Concomitant]
     Active Substance: CICLESONIDE

REACTIONS (15)
  - Peripheral swelling [Not Recovered/Not Resolved]
  - Nausea [Unknown]
  - Death [Fatal]
  - Renal impairment [Recovered/Resolved]
  - Pulmonary oedema [Recovered/Resolved]
  - Decreased appetite [Not Recovered/Not Resolved]
  - Retching [Unknown]
  - Diarrhoea [Unknown]
  - Headache [Unknown]
  - Catheter site haemorrhage [Unknown]
  - Fluid retention [Recovered/Resolved]
  - Device breakage [Recovered/Resolved]
  - Dehydration [Recovered/Resolved]
  - Kidney infection [Recovered/Resolved]
  - Blood creatinine increased [Not Recovered/Not Resolved]

NARRATIVE: CASE EVENT DATE: 20170506
